FAERS Safety Report 25263242 (Version 1)
Quarter: 2025Q2

REPORT INFORMATION
  Report Type: Spontaneous
  Country: PL (occurrence: PL)
  Receive Date: 20250502
  Receipt Date: 20250502
  Transmission Date: 20250717
  Serious: Yes (Death, Other)
  Sender: ACCORD
  Company Number: None

PATIENT
  Age: 61 Year
  Sex: Female

DRUGS (4)
  1. LETROZOLE [Suspect]
     Active Substance: LETROZOLE
     Indication: HER2 negative breast cancer
     Dosage: 2.5 MG, QD
     Dates: start: 20181217
  2. ZOLEDRONIC ACID [Suspect]
     Active Substance: ZOLEDRONIC ACID
     Indication: Breast cancer
  3. RIBOCICLIB [Suspect]
     Active Substance: RIBOCICLIB
     Indication: HER2 negative breast cancer
     Dosage: 600 MG, QD (EVERY 28 DAYS)
     Dates: start: 20181217
  4. RIBOCICLIB [Suspect]
     Active Substance: RIBOCICLIB
     Indication: HER2 negative breast cancer
     Dosage: 400 MG, QD

REACTIONS (15)
  - Death [Fatal]
  - Pleural effusion [Unknown]
  - Post procedural inflammation [Unknown]
  - Purulent discharge [Unknown]
  - Pyrexia [Unknown]
  - Depressed mood [Unknown]
  - Dysphagia [Unknown]
  - Body mass index decreased [Unknown]
  - Transaminases increased [Unknown]
  - Asthenia [Unknown]
  - Hypophagia [Unknown]
  - Catheter site discharge [Unknown]
  - General physical health deterioration [Unknown]
  - Headache [Unknown]
  - Osteosclerosis [Unknown]

NARRATIVE: CASE EVENT DATE: 20230701
